FAERS Safety Report 9938432 (Version 3)
Quarter: 2014Q2

REPORT INFORMATION
  Report Type: Spontaneous
  Country: DE (occurrence: DE)
  Receive Date: 20140303
  Receipt Date: 20140429
  Transmission Date: 20141212
  Serious: Yes (Other)
  Sender: FDA-Public Use
  Company Number: DE-ELI_LILLY_AND_COMPANY-DE201402006438

PATIENT
  Sex: Male

DRUGS (9)
  1. CYMBALTA [Suspect]
     Indication: PRODUCT USED FOR UNKNOWN INDICATION
     Dosage: 30 MG, UNKNOWN
     Route: 048
     Dates: start: 20140115, end: 20140205
  2. CYMBALTA [Suspect]
     Dosage: 60 MG, UNKNOWN
     Route: 048
     Dates: start: 20140206, end: 20140219
  3. CYMBALTA [Suspect]
     Dosage: 30 MG, QD
     Route: 048
     Dates: start: 20140219
  4. CELEBREX [Concomitant]
     Dosage: 200 MG, UNKNOWN
     Route: 065
  5. QUENSYL [Concomitant]
     Dosage: 200 MG, UNKNOWN
     Route: 065
  6. MTX [Concomitant]
     Dosage: 20 MG, UNKNOWN
     Route: 065
  7. CETIRIZIN [Concomitant]
     Dosage: 10 MG, UNKNOWN
     Route: 065
  8. FOLIC ACID [Concomitant]
     Dosage: UNK, UNKNOWN
     Route: 065
  9. CALCIUM [Concomitant]
     Dosage: UNK, UNKNOWN
     Route: 065

REACTIONS (3)
  - Sudden hearing loss [Recovered/Resolved]
  - Tinnitus [Recovered/Resolved]
  - Bronchitis [Recovered/Resolved]
